FAERS Safety Report 14670772 (Version 2)
Quarter: 2018Q2

REPORT INFORMATION
  Report Type: Spontaneous
  Country: BA (occurrence: BA)
  Receive Date: 20180322
  Receipt Date: 20180427
  Transmission Date: 20180711
  Serious: Yes (Disabling, Other)
  Sender: FDA-Public Use
  Company Number: BA-TEVA-2018-BA-870798

PATIENT
  Age: 22 Year
  Sex: Male
  Weight: 85 kg

DRUGS (3)
  1. RISSET [Suspect]
     Active Substance: RISPERIDONE
     Indication: PSYCHOTIC DISORDER
     Dosage: 4 MILLIGRAM DAILY;
     Route: 048
     Dates: start: 20171127, end: 20171129
  2. PRAZINE (PROMAZINE HYDROCHLORIDE) [Suspect]
     Active Substance: PROMAZINE HYDROCHLORIDE
     Indication: PSYCHOTIC DISORDER
     Dosage: 125 MILLIGRAM DAILY;
     Route: 048
     Dates: start: 20171129, end: 20171129
  3. APAURIN (DIAZEPAM) [Concomitant]
     Indication: RESTLESSNESS
     Dosage: 20 MILLIGRAM DAILY;
     Route: 048
     Dates: start: 20171127, end: 20171129

REACTIONS (2)
  - Cardiac arrest [Recovered/Resolved with Sequelae]
  - Encephalopathy [Unknown]

NARRATIVE: CASE EVENT DATE: 20171129
